FAERS Safety Report 21072997 (Version 2)
Quarter: 2022Q3

REPORT INFORMATION
  Report Type: Spontaneous
  Country: US (occurrence: US)
  Receive Date: 20220712
  Receipt Date: 20220724
  Transmission Date: 20221027
  Serious: No
  Sender: FDA-Public Use
  Company Number: US-SANOFI-01178013

PATIENT
  Age: 27 Year
  Sex: Female

DRUGS (4)
  1. DUPIXENT [Suspect]
     Active Substance: DUPILUMAB
     Indication: Dermatitis atopic
     Dosage: 300 MG, QOW
     Route: 058
  2. MOMETASONE [Concomitant]
     Active Substance: MOMETASONE
  3. PREDNISONE [Concomitant]
     Active Substance: PREDNISONE
     Route: 048
  4. TRIAMCINOLONE [Concomitant]
     Active Substance: TRIAMCINOLONE

REACTIONS (5)
  - Papule [Unknown]
  - Dry skin [Unknown]
  - Erythema [Unknown]
  - Eczema [Unknown]
  - Dermatitis atopic [Unknown]
